FAERS Safety Report 17555516 (Version 1)
Quarter: 2020Q1

REPORT INFORMATION
  Report Type: Spontaneous
  Country: US (occurrence: US)
  Receive Date: 20200310
  Receipt Date: 20200310
  Transmission Date: 20200409
  Serious: No
  Sender: FDA-Public Use
  Company Number: None

PATIENT

DRUGS (3)
  1. VAZCULEP [Suspect]
     Active Substance: PHENYLEPHRINE HYDROCHLORIDE
  2. PHENYLEPHRINE [Suspect]
     Active Substance: PHENYLEPHRINE HYDROCHLORIDE
  3. ONDANSETRON [Suspect]
     Active Substance: ONDANSETRON

REACTIONS (5)
  - Wrong product stored [None]
  - Blood pressure increased [None]
  - Wrong product administered [None]
  - Headache [None]
  - Product selection error [None]
